FAERS Safety Report 16614351 (Version 1)
Quarter: 2019Q3

REPORT INFORMATION
  Report Type: Spontaneous
  Country: US (occurrence: US)
  Receive Date: 20190723
  Receipt Date: 20190723
  Transmission Date: 20191004
  Serious: No
  Sender: FDA-Public Use
  Company Number: US-ABBVIE-19P-163-2759610-00

PATIENT
  Age: 23 Year
  Sex: Female

DRUGS (1)
  1. ORILISSA [Suspect]
     Active Substance: ELAGOLIX SODIUM
     Indication: DYSMENORRHOEA
     Route: 048
     Dates: start: 201904

REACTIONS (4)
  - Oligomenorrhoea [Not Recovered/Not Resolved]
  - Tearfulness [Not Recovered/Not Resolved]
  - Hot flush [Not Recovered/Not Resolved]
  - Anxiety [Not Recovered/Not Resolved]

NARRATIVE: CASE EVENT DATE: 201904
